FAERS Safety Report 21593004 (Version 1)
Quarter: 2022Q4

REPORT INFORMATION
  Report Type: Report from Study
  Country: US (occurrence: US)
  Receive Date: 20221114
  Receipt Date: 20221114
  Transmission Date: 20230113
  Serious: Yes (Other)
  Sender: FDA-Public Use
  Company Number: US-ABBVIE-4194154

PATIENT
  Sex: Male

DRUGS (2)
  1. IMBRUVICA [Suspect]
     Active Substance: IBRUTINIB
     Indication: Product used for unknown indication
     Route: 048
     Dates: start: 2019
  2. ATORVASTATIN [Suspect]
     Active Substance: ATORVASTATIN
     Indication: Product used for unknown indication
     Route: 065

REACTIONS (16)
  - Joint range of motion decreased [Unknown]
  - Onychomycosis [Unknown]
  - Muscle rupture [Unknown]
  - Nausea [Recovering/Resolving]
  - Heart rate irregular [Recovering/Resolving]
  - Unevaluable event [Recovering/Resolving]
  - Blood pressure abnormal [Recovering/Resolving]
  - Arthralgia [Recovering/Resolving]
  - Back disorder [Recovering/Resolving]
  - Night sweats [Unknown]
  - Liver disorder [Unknown]
  - Hepatic steatosis [Unknown]
  - Pancreatic enlargement [Unknown]
  - Nail injury [Unknown]
  - Pain in extremity [Unknown]
  - Diabetes mellitus [Recovering/Resolving]

NARRATIVE: CASE EVENT DATE: 20220101
